FAERS Safety Report 13809324 (Version 3)
Quarter: 2018Q1

REPORT INFORMATION
  Report Type: Report from Study
  Country: US (occurrence: US)
  Receive Date: 20170728
  Receipt Date: 20180119
  Transmission Date: 20180508
  Serious: No
  Sender: FDA-Public Use
  Company Number: US-AMGEN-USASL2017076864

PATIENT
  Age: 75 Year
  Sex: Female

DRUGS (3)
  1. IMDUR [Concomitant]
     Active Substance: ISOSORBIDE MONONITRATE
  2. REPATHA [Suspect]
     Active Substance: EVOLOCUMAB
     Indication: PRODUCT USED FOR UNKNOWN INDICATION
     Dosage: UNK UNK, Q2WK
     Route: 065
  3. COUMADIN [Concomitant]
     Active Substance: WARFARIN SODIUM

REACTIONS (6)
  - Pain in extremity [Unknown]
  - Injection site bruising [Unknown]
  - Malaise [Unknown]
  - Hypotension [Recovered/Resolved]
  - Chest pain [Unknown]
  - Syncope [Unknown]

NARRATIVE: CASE EVENT DATE: 2017
